FAERS Safety Report 6470547-5 (Version None)
Quarter: 2009Q4

REPORT INFORMATION
  Report Type: 
  Country: None (occurrence: None)
  Receive Date: 20091203
  Receipt Date: 20091125
  Transmission Date: 20100525
  Serious: Yes (Other)
  Sender: FDA-Public Use
  Company Number: JP-PFIZER INC-2009299642

PATIENT
  Age: 3 Year
  Sex: Male

DRUGS (1)
  1. CARDENALIN [Suspect]
     Dosage: 1 MG, UNK
     Route: 048
     Dates: start: 20091117

REACTIONS (1)
  - ACCIDENTAL DRUG INTAKE BY CHILD [None]
